FAERS Safety Report 13101351 (Version 1)
Quarter: 2017Q1

REPORT INFORMATION
  Report Type: Spontaneous
  Country: US (occurrence: US)
  Receive Date: 20170110
  Receipt Date: 20170110
  Transmission Date: 20170428
  Serious: No
  Sender: FDA-Public Use
  Company Number: None

PATIENT
  Age: 49 Year
  Sex: Female

DRUGS (5)
  1. STELARA [Suspect]
     Active Substance: USTEKINUMAB
     Indication: UTERINE LEIOMYOMA
  2. STELARA [Suspect]
     Active Substance: USTEKINUMAB
     Indication: PSORIATIC ARTHROPATHY
  3. STELARA [Suspect]
     Active Substance: USTEKINUMAB
     Indication: MENORRHAGIA
  4. STELARA [Suspect]
     Active Substance: USTEKINUMAB
     Indication: GENITAL DISORDER FEMALE
  5. STELARA [Suspect]
     Active Substance: USTEKINUMAB
     Indication: MENSTRUATION IRREGULAR

REACTIONS (5)
  - Pruritus [None]
  - Skin exfoliation [None]
  - Pain [None]
  - Inflammation [None]
  - Condition aggravated [None]

NARRATIVE: CASE EVENT DATE: 20161101
